FAERS Safety Report 25291567 (Version 1)
Quarter: 2025Q2

REPORT INFORMATION
  Report Type: Spontaneous
  Country: US (occurrence: US)
  Receive Date: 20250510
  Receipt Date: 20250510
  Transmission Date: 20250717
  Serious: No
  Sender: SANOFI AVENTIS
  Company Number: US-SA-2025SA121171

PATIENT
  Sex: Female
  Weight: 104.55 kg

DRUGS (9)
  1. DUPIXENT [Suspect]
     Active Substance: DUPILUMAB
     Indication: Dermatitis atopic
     Dosage: 300 MG, QOW
     Route: 058
  2. ALIGN [Concomitant]
     Active Substance: BIFIDOBACTERIUM LONGUM SUBSP. INFANTIS
  3. AMBIEN [Concomitant]
     Active Substance: ZOLPIDEM TARTRATE
  4. CYCLOBENZAPRINE HYDROCHLORIDE [Concomitant]
     Active Substance: CYCLOBENZAPRINE HYDROCHLORIDE
  5. ASPIRIN [Concomitant]
     Active Substance: ASPIRIN
  6. MAXALT [Concomitant]
     Active Substance: RIZATRIPTAN BENZOATE
  7. Propranol Hcl [Concomitant]
  8. VITAMINS [Concomitant]
     Active Substance: VITAMINS
  9. TRAMADOL HCL [Concomitant]
     Active Substance: TRAMADOL HYDROCHLORIDE

REACTIONS (2)
  - Drug hypersensitivity [Unknown]
  - Rash [Recovered/Resolved]
